FAERS Safety Report 10011286 (Version 2)
Quarter: 2014Q2

REPORT INFORMATION
  Report Type: Report from Study
  Country: US (occurrence: US)
  Receive Date: 20140314
  Receipt Date: 20140402
  Transmission Date: 20141212
  Serious: Yes (Hospitalization)
  Sender: FDA-Public Use
  Company Number: US-JNJFOC-20140306384

PATIENT
  Age: 21 Year
  Sex: Male
  Weight: 61.3 kg

DRUGS (9)
  1. REMICADE [Suspect]
     Indication: INFLAMMATORY BOWEL DISEASE
     Route: 042
     Dates: start: 20011010
  2. ALBUTEROL [Concomitant]
     Route: 065
  3. BENTYL [Concomitant]
     Route: 065
  4. IRON [Concomitant]
     Route: 065
  5. SINGULAIR [Concomitant]
     Route: 065
  6. MULTIVITAMINS [Concomitant]
     Route: 065
  7. OMEPRAZOLE [Concomitant]
     Route: 065
  8. BACTRIM [Concomitant]
     Route: 065
  9. HYDROCORTISONE [Concomitant]
     Indication: INFLAMMATORY BOWEL DISEASE
     Route: 065

REACTIONS (1)
  - Gastrointestinal stoma complication [Recovered/Resolved]
